FAERS Safety Report 5911649-9 (Version None)
Quarter: 2008Q4

REPORT INFORMATION
  Report Type: 
  Country: None (occurrence: None)
  Receive Date: 20081003
  Receipt Date: 20080922
  Transmission Date: 20090506
  Serious: No
  Sender: FDA-Public Use
  Company Number: DSU-2008-01016

PATIENT
  Age: 69 Year
  Sex: Male
  Weight: 72.5755 kg

DRUGS (3)
  1. WELCHOL [Suspect]
     Indication: HYPERCHOLESTEROLAEMIA
     Dosage: 1250 MG (1250 MG, QD), PER ORAL
     Route: 048
  2. LACTULOSE (LACTULOSE) (LACTULOSE) [Concomitant]
  3. FUROSEMIDE [Concomitant]

REACTIONS (2)
  - DRUG ADMINISTRATION ERROR [None]
  - FOREIGN BODY TRAUMA [None]
